FAERS Safety Report 4975544-4 (Version None)
Quarter: 2006Q2

REPORT INFORMATION
  Report Type: 
  Country: None (occurrence: None)
  Receive Date: 20060411
  Receipt Date: 20060331
  Transmission Date: 20061013
  Serious: Yes (Other)
  Sender: FDA-Public Use
  Company Number: 2006028034

PATIENT
  Age: 47 Year
  Sex: Female

DRUGS (1)
  1. CABERGOLINE [Suspect]
     Indication: RESTLESS LEGS SYNDROME
     Dosage: ORAL
     Route: 048
     Dates: end: 20051201

REACTIONS (5)
  - ARRHYTHMIA [None]
  - CARDIAC VALVE DISEASE [None]
  - GALACTORRHOEA [None]
  - HYPERPROLACTINAEMIA [None]
  - HYPERTROPHY BREAST [None]
